FAERS Safety Report 9405037 (Version 1)
Quarter: 2013Q3

REPORT INFORMATION
  Report Type: Spontaneous
  Country: US (occurrence: US)
  Receive Date: 20130717
  Receipt Date: 20130717
  Transmission Date: 20140515
  Serious: No
  Sender: FDA-Public Use
  Company Number: US-BRISTOL-MYERS SQUIBB COMPANY-18838136

PATIENT
  Age: 57 Year
  Sex: Male

DRUGS (17)
  1. YERVOY [Suspect]
     Indication: METASTATIC MALIGNANT MELANOMA
     Route: 042
     Dates: start: 20130418
  2. MAGNESIUM [Concomitant]
     Dates: start: 20130418
  3. POTASSIUM [Concomitant]
     Dates: start: 20130418
  4. VITAMIN C [Concomitant]
     Dates: start: 20130418
  5. VITAMIN E [Concomitant]
     Dates: start: 20130418
  6. COQ10 [Concomitant]
     Dates: start: 20130418
  7. CETIRIZINE [Concomitant]
     Dates: start: 20130418
  8. CALCIUM [Concomitant]
     Dates: start: 20130418
  9. CALCIUM [Concomitant]
     Dates: start: 20130418
  10. VITAMIN D [Concomitant]
     Dates: start: 20130418
  11. VITAMIN B12 [Concomitant]
     Dates: start: 20130418
  12. MULTIVITAMIN [Concomitant]
     Dates: start: 20130418
  13. BETACAROTENE [Concomitant]
     Dates: start: 20130418
  14. DEXAMETHASONE [Concomitant]
     Dates: start: 20130418
  15. OXYCODONE [Concomitant]
     Indication: PREMEDICATION
     Dates: start: 20130418
  16. BENADRYL [Concomitant]
     Indication: PREMEDICATION
     Dates: start: 20130418
  17. VINPOCETINE [Concomitant]
     Dates: start: 20130418

REACTIONS (1)
  - Herpes zoster [Unknown]
